FAERS Safety Report 21445316 (Version 2)
Quarter: 2022Q4

REPORT INFORMATION
  Report Type: Spontaneous
  Country: US (occurrence: US)
  Receive Date: 20221012
  Receipt Date: 20221108
  Transmission Date: 20230113
  Serious: Yes (Other)
  Sender: FDA-Public Use
  Company Number: US-SA-SAC00000000206196

PATIENT
  Age: 36 Year

DRUGS (1)
  1. ZANTAC [Suspect]
     Active Substance: RANITIDINE HYDROCHLORIDE
     Dosage: FREQUENCY AND DOSE: OTHER
     Route: 065
     Dates: start: 200705, end: 202006

REACTIONS (1)
  - Bladder cancer [Unknown]
